FAERS Safety Report 10031205 (Version 4)
Quarter: 2014Q2

REPORT INFORMATION
  Report Type: Spontaneous
  Country: DE (occurrence: DE)
  Receive Date: 20140324
  Receipt Date: 20140610
  Transmission Date: 20141212
  Serious: No
  Sender: FDA-Public Use
  Company Number: DE-BIOGENIDEC-2014BI024170

PATIENT
  Age: 52 Year
  Sex: Female

DRUGS (4)
  1. TECFIDERA [Suspect]
     Indication: MULTIPLE SCLEROSIS
     Route: 048
     Dates: start: 20140205
  2. TECFIDERA [Suspect]
     Indication: MULTIPLE SCLEROSIS
     Route: 048
     Dates: start: 20140223
  3. TECFIDERA [Suspect]
     Indication: MULTIPLE SCLEROSIS
     Route: 048
  4. FAMPYRA [Concomitant]
     Dates: start: 201203

REACTIONS (4)
  - Rash [Not Recovered/Not Resolved]
  - Chapped lips [Recovered/Resolved]
  - Prescribed underdose [Recovered/Resolved]
  - Oral pain [Recovered/Resolved]
